FAERS Safety Report 16318373 (Version 1)
Quarter: 2019Q2

REPORT INFORMATION
  Report Type: Spontaneous
  Country: GB (occurrence: GB)
  Receive Date: 20190516
  Receipt Date: 20190516
  Transmission Date: 20190711
  Serious: Yes (Other)
  Sender: FDA-Public Use
  Company Number: GB-TEVA-2019-GB-1049236

PATIENT
  Age: 26 Year
  Sex: Female
  Weight: 86.63 kg

DRUGS (3)
  1. AMOXICILLIN. [Concomitant]
     Active Substance: AMOXICILLIN
  2. CLARITHROMYCIN. [Concomitant]
     Active Substance: CLARITHROMYCIN
  3. OMEPRAZOLE. [Suspect]
     Active Substance: OMEPRAZOLE
     Indication: GASTRIC INFECTION
     Route: 048
     Dates: start: 20190408, end: 20190409

REACTIONS (3)
  - Nausea [Not Recovered/Not Resolved]
  - Abdominal pain upper [Not Recovered/Not Resolved]
  - Appetite disorder [Not Recovered/Not Resolved]

NARRATIVE: CASE EVENT DATE: 20190408
